FAERS Safety Report 24395971 (Version 1)
Quarter: 2024Q4

REPORT INFORMATION
  Report Type: Spontaneous
  Country: US (occurrence: US)
  Receive Date: 20241004
  Receipt Date: 20241004
  Transmission Date: 20250115
  Serious: No
  Sender: CORIUM
  Company Number: US-MIMS-CORIMC-5557

PATIENT

DRUGS (1)
  1. ADLARITY [Suspect]
     Active Substance: DONEPEZIL HYDROCHLORIDE
     Indication: Dementia Alzheimer^s type
     Dosage: UNK, ONCE A WEEK
     Route: 062
     Dates: start: 202403

REACTIONS (3)
  - Product storage error [Unknown]
  - Product temperature excursion issue [Unknown]
  - Drug ineffective [Unknown]

NARRATIVE: CASE EVENT DATE: 20240701
